FAERS Safety Report 8540382-2 (Version None)
Quarter: 2012Q3

REPORT INFORMATION
  Report Type: 
  Country: None (occurrence: None)
  Receive Date: 20120726
  Receipt Date: 20110928
  Transmission Date: 20120928
  Serious: No
  Sender: FDA-Public Use
  Company Number: US-ASTRAZENECA-2011SE02106

PATIENT
  Age: 75 Year
  Sex: Female
  Weight: 59 kg

DRUGS (5)
  1. SEROQUEL [Suspect]
     Indication: DEPRESSION
     Route: 048
  2. TILOPINE [Concomitant]
     Indication: DEPRESSION
     Route: 048
  3. SEROQUEL [Suspect]
     Route: 048
     Dates: start: 20110917
  4. SEROQUEL [Suspect]
     Route: 048
  5. BUPROPION HCL [Concomitant]
     Route: 048

REACTIONS (5)
  - MEMORY IMPAIRMENT [None]
  - HYPERSOMNIA [None]
  - FATIGUE [None]
  - DRUG DOSE OMISSION [None]
  - DRUG EFFECT DECREASED [None]
